FAERS Safety Report 8809282 (Version 1)
Quarter: 2012Q4

REPORT INFORMATION
  Report Type: 
  Country: US (occurrence: US)
  Receive Date: 20120926
  Receipt Date: 20120926
  Transmission Date: 20130627
  Serious: No
  Sender: FDA-Public Use
  Company Number: US-B.I. PHARMACEUTICALS,INC./RIDGEFIELD-2012-BP-23239BP

PATIENT
  Age: 59 Year
  Sex: Female
  Weight: 60 kg

DRUGS (12)
  1. SPIRIVA [Suspect]
     Indication: CHRONIC OBSTRUCTIVE PULMONARY DISEASE
     Dosage: 18 mcg
     Route: 055
     Dates: start: 2011
  2. SPIRIVA [Suspect]
     Dosage: 18 mcg
     Route: 048
     Dates: start: 20120921, end: 20120921
  3. THEOPHYLLINE [Concomitant]
     Indication: CHRONIC OBSTRUCTIVE PULMONARY DISEASE
     Dosage: 100 mg
     Route: 048
     Dates: start: 2011
  4. PRIMIDONE [Concomitant]
     Indication: TREMOR
     Dosage: 300 mg
     Route: 048
     Dates: start: 2008
  5. ACYCLOVIR [Concomitant]
     Dosage: 200 mg
     Route: 048
     Dates: start: 2009
  6. LITHIUM CARBONATE [Concomitant]
     Indication: BIPOLAR DISORDER
     Dosage: 600 mg
     Route: 048
     Dates: start: 2008
  7. ZAROXOLYN [Concomitant]
     Indication: HYPOTHYROIDISM
     Dosage: 100 mg
     Route: 048
     Dates: start: 2009
  8. CITALOPRAM [Concomitant]
     Indication: BIPOLAR DISORDER
     Dosage: 200 mg
     Route: 048
     Dates: start: 2008
  9. FLOVENT [Concomitant]
     Indication: CHRONIC OBSTRUCTIVE PULMONARY DISEASE
     Dosage: 500 mg
     Route: 055
     Dates: start: 2011
  10. AMITRIPTYLINE [Concomitant]
     Indication: DECREASED APPETITE
     Dosage: 25 mg
     Route: 048
     Dates: start: 2009
  11. LAMOTRIGINE [Concomitant]
     Indication: BIPOLAR DISORDER
     Dosage: 300 mg
     Route: 048
     Dates: start: 2008
  12. DIAZEPAM [Concomitant]
     Indication: BIPOLAR DISORDER
     Dosage: 10 mg
     Route: 048
     Dates: start: 2008

REACTIONS (1)
  - Incorrect route of drug administration [Recovered/Resolved]
